FAERS Safety Report 4347228-7 (Version None)
Quarter: 2004Q2

REPORT INFORMATION
  Report Type: 
  Country: None (occurrence: None)
  Receive Date: 20040426
  Receipt Date: 20040406
  Transmission Date: 20050107
  Serious: Yes (Disabling)
  Sender: FDA-Public Use
  Company Number: US-MERCK-0404USA00765

PATIENT
  Age: 46 Year
  Sex: Female

DRUGS (5)
  1. PRINIVIL [Concomitant]
     Route: 065
  2. ZOCOR [Suspect]
     Indication: HYPERCHOLESTEROLAEMIA
     Route: 048
     Dates: start: 20030801, end: 20031001
  3. ZOCOR [Suspect]
     Route: 048
     Dates: end: 20030801
  4. ZOCOR [Suspect]
     Route: 048
     Dates: start: 20040101, end: 20040401
  5. ZOCOR [Suspect]
     Route: 048
     Dates: start: 20040401

REACTIONS (7)
  - DIFFICULTY IN WALKING [None]
  - MEDICATION ERROR [None]
  - MUSCLE SPASMS [None]
  - MYALGIA [None]
  - NECK PAIN [None]
  - OEDEMA PERIPHERAL [None]
  - PAIN IN EXTREMITY [None]
